FAERS Safety Report 7492639-4 (Version None)
Quarter: 2011Q2

REPORT INFORMATION
  Report Type: 
  Country: None (occurrence: None)
  Receive Date: 20110519
  Receipt Date: 20071120
  Transmission Date: 20111010
  Serious: Yes (Death, Life-Threatening, Hospitalization, Other)
  Sender: FDA-Public Use
  Company Number: US-BAYER-200714918NA

PATIENT
  Age: 67 Year
  Sex: Female
  Weight: 85 kg

DRUGS (24)
  1. TRASYLOL [Suspect]
     Indication: TRICUSPID VALVE REPAIR
     Dosage: 50 ML / HOUR
  2. LASIX [Concomitant]
     Dosage: 2M MG
     Route: 048
  3. DOPAMINE HCL [Concomitant]
     Dosage: UNK
     Route: 042
     Dates: start: 20051019
  4. TRASYLOL [Suspect]
  5. RED BLOOD CELLS, CONCENTRATED [Concomitant]
     Dosage: 6 U, UNK
     Dates: start: 20051019
  6. LISINOPRIL [Concomitant]
     Dosage: 40 MG, UNK
     Route: 048
  7. HEPARIN [Concomitant]
     Dosage: 3000 UNITS
     Route: 042
     Dates: start: 20051018
  8. ACETYLSALICYLIC ACID SRT [Concomitant]
     Dosage: 81 MG
     Route: 048
  9. VANCOMYCIN [Concomitant]
     Dosage: 1 G, UNK
     Route: 042
     Dates: start: 20051019
  10. SODIUM BICARBONATE [Concomitant]
     Dosage: 50 MEQ
     Dates: start: 20051019
  11. TRASYLOL [Suspect]
     Indication: MITRAL VALVE REPLACEMENT
     Dosage: 1 ML INITIAL TEST DOSE
     Dates: start: 20051019, end: 20051019
  12. TRASYLOL [Suspect]
     Indication: AORTIC VALVE REPLACEMENT
     Dosage: 400 ML LOADING DOSE
     Dates: start: 20051019
  13. ZESTRIL [Concomitant]
     Dosage: 40 MG
     Route: 048
  14. ATENOLOL [Concomitant]
     Dosage: 25 MG
     Route: 048
  15. BUMEX [Concomitant]
     Dosage: 2 MG, UNK
     Route: 042
     Dates: start: 20051019
  16. FRESH FROZEN PLASMA [Concomitant]
     Dosage: 2 U, UNK
     Dates: start: 20051020
  17. VERSED [Concomitant]
     Dosage: 2 MG
     Route: 042
     Dates: start: 20051018
  18. LEVOPHED [Concomitant]
     Dosage: UNK
     Route: 042
     Dates: start: 20051019
  19. LOVENOX [Concomitant]
     Dosage: 80 MG, BID
     Route: 058
     Dates: start: 20051014
  20. COUMADIN [Concomitant]
     Dosage: 6 MG
     Route: 048
     Dates: end: 20051013
  21. CALCIUM CHLORIDE [Concomitant]
     Dosage: 1 GRAM
     Route: 042
     Dates: start: 20051019
  22. PLATELETS [Concomitant]
     Dosage: 1 U, UNK
     Dates: start: 20051020
  23. PLENDIL [Concomitant]
     Dosage: 5 MG
     Route: 048
     Dates: start: 20050406
  24. LANOXIN [Concomitant]
     Dosage: 0.25 MG
     Route: 048

REACTIONS (7)
  - PAIN [None]
  - RENAL FAILURE ACUTE [None]
  - GALLBLADDER NON-FUNCTIONING [None]
  - EMOTIONAL DISTRESS [None]
  - SEPSIS [None]
  - ADVERSE EVENT [None]
  - INJURY [None]
